FAERS Safety Report 8548021-1 (Version None)
Quarter: 2012Q3

REPORT INFORMATION
  Report Type: 
  Country: None (occurrence: None)
  Receive Date: 20120730
  Receipt Date: 20120719
  Transmission Date: 20120928
  Serious: Yes (Hospitalization)
  Sender: FDA-Public Use
  Company Number: JP-AMGEN-JPNSP2012045070

PATIENT
  Age: 84 Year
  Sex: Female

DRUGS (7)
  1. LOCHOLEST [Concomitant]
     Route: 048
  2. LANSOPRAZOLE [Concomitant]
     Route: 048
     Dates: start: 20120710
  3. AMLODIPINE [Concomitant]
     Route: 048
  4. OLMESARTAN MEDOXOMIL [Concomitant]
     Route: 048
  5. AMOXICILLIN [Concomitant]
     Route: 048
     Dates: start: 20120710
  6. CLARITHROMYCIN [Concomitant]
     Route: 048
     Dates: start: 20120710
  7. ROMIPLATE [Suspect]
     Indication: PRODUCT USED FOR UNKNOWN INDICATION
     Route: 058
     Dates: start: 20120703, end: 20120710

REACTIONS (1)
  - MYOCARDIAL INFARCTION [None]
